FAERS Safety Report 26038839 (Version 1)
Quarter: 2025Q4

REPORT INFORMATION
  Report Type: Spontaneous
  Country: BR (occurrence: BR)
  Receive Date: 20251113
  Receipt Date: 20251113
  Transmission Date: 20260117
  Serious: Yes (Hospitalization, Other)
  Sender: CHEPLAPHARM
  Company Number: BR-BIOPAS-2025-BR-000240

PATIENT
  Sex: Male
  Weight: 15.199 kg

DRUGS (5)
  1. CLONAZEPAM [Suspect]
     Active Substance: CLONAZEPAM
     Indication: Epilepsy
     Dosage: 3 DROPS 3 TIMES A DAY?DAILY DOSE: 9 DROP
     Route: 048
     Dates: start: 201601
  2. Charlotte 24 Fe [Concomitant]
     Indication: Epilepsy
     Dosage: 2 DROPS TWICE A DAY?DAILY DOSE: 4 DROP
     Route: 048
  3. KEPPRA [Concomitant]
     Active Substance: LEVETIRACETAM
     Indication: Epilepsy
     Dosage: 3.5 ML IN THE MORNING AND 3.0 ML AT NIGHT?DAILY DOSE: 6.5 MILLILITRE
     Route: 048
  4. HYDANTAL [Concomitant]
     Active Substance: MEPHENYTOIN\PHENOBARBITAL
     Indication: Epilepsy
     Dosage: 1 TABLET EVERY 12 HOURS?DAILY DOSE: 2 MILLIGRAM
     Route: 048
  5. LAMOTRIGINE [Concomitant]
     Active Substance: LAMOTRIGINE
     Indication: Epilepsy
     Dosage: 1/2 TABLET IN THE MORNING?DAILY DOSE: 0.5 DOSAGE FORM
     Route: 048

REACTIONS (8)
  - Aspiration [Recovered/Resolved]
  - Vomiting [Recovered/Resolved]
  - Respiratory disorder [Recovered/Resolved]
  - Drug ineffective [Unknown]
  - Drug dependence [Not Recovered/Not Resolved]
  - Weight decreased [Not Recovered/Not Resolved]
  - Muscle atrophy [Not Recovered/Not Resolved]
  - Product availability issue [Not Recovered/Not Resolved]

NARRATIVE: CASE EVENT DATE: 20250101
